FAERS Safety Report 7035139-8 (Version None)
Quarter: 2010Q4

REPORT INFORMATION
  Report Type: 
  Country: None (occurrence: None)
  Receive Date: 20101008
  Receipt Date: 20101001
  Transmission Date: 20110411
  Serious: Yes (Death)
  Sender: FDA-Public Use
  Company Number: FR-GENZYME-FABR-1001540

PATIENT

DRUGS (4)
  1. FABRAZYME [Suspect]
     Indication: FABRY'S DISEASE
     Dosage: 0.66 MG/KG, Q2W
     Route: 042
     Dates: start: 20100101
  2. FABRAZYME [Suspect]
     Dosage: 0.2 MG/KG, Q2W
     Route: 042
     Dates: start: 20091001, end: 20091101
  3. FABRAZYME [Suspect]
     Dosage: 0.43 MG/KG, Q2W
     Route: 042
     Dates: start: 20091201, end: 20100101
  4. FABRAZYME [Suspect]
     Dosage: UNK
     Route: 042
     Dates: start: 20080401

REACTIONS (2)
  - CARDIAC FAILURE [None]
  - LEFT VENTRICULAR HYPERTROPHY [None]
